FAERS Safety Report 22370408 (Version 1)
Quarter: 2023Q2

REPORT INFORMATION
  Report Type: Report from Study
  Country: KR (occurrence: KR)
  Receive Date: 20230526
  Receipt Date: 20230526
  Transmission Date: 20230722
  Serious: Yes (Other)
  Sender: FDA-Public Use
  Company Number: KR-Vifor (International) Inc.-VIT-2023-03843

PATIENT
  Age: 63 Year
  Sex: Male
  Weight: 76 kg

DRUGS (2)
  1. VELPHORO [Suspect]
     Active Substance: SUCROFERRIC OXYHYDROXIDE
     Indication: Chronic kidney disease
     Dosage: 500 MILLIGRAM (1 DOSAGE FORM)
     Route: 048
     Dates: start: 20230221
  2. CANDEMORE [Concomitant]
     Indication: Hypertension
     Route: 048
     Dates: start: 202105

REACTIONS (1)
  - Melaena [Recovered/Resolved]

NARRATIVE: CASE EVENT DATE: 20230225
